FAERS Safety Report 19440509 (Version 1)
Quarter: 2021Q2

REPORT INFORMATION
  Report Type: Spontaneous
  Country: US (occurrence: US)
  Receive Date: 20210621
  Receipt Date: 20210621
  Transmission Date: 20210717
  Serious: No
  Sender: FDA-Public Use
  Company Number: US-STRIDES ARCOLAB LIMITED-2020SP014998

PATIENT
  Age: 73 Year
  Sex: Male

DRUGS (1)
  1. HYDROCORTISONE. [Suspect]
     Active Substance: HYDROCORTISONE
     Indication: KERATOSIS FOLLICULAR
     Dosage: UNK; FORMULATION: CREAM
     Route: 065

REACTIONS (1)
  - Drug ineffective [Unknown]
